FAERS Safety Report 7324025-1 (Version None)
Quarter: 2011Q1

REPORT INFORMATION
  Report Type: 
  Country: None (occurrence: None)
  Receive Date: 20110301
  Receipt Date: 20110217
  Transmission Date: 20110831
  Serious: Yes (Other)
  Sender: FDA-Public Use
  Company Number: US-ALLERGAN-1100787US

PATIENT
  Age: 66 Year
  Sex: Female
  Weight: 96.599 kg

DRUGS (11)
  1. DYSPORT [Concomitant]
     Indication: PRODUCT USED FOR UNKNOWN INDICATION
     Dosage: UNK
     Dates: start: 20110118, end: 20110118
  2. METOPROLOL [Concomitant]
     Indication: SYNCOPE
     Dosage: 50 MG, QD
     Route: 048
     Dates: start: 20061211, end: 20110202
  3. LEVOTHYROXINE SODIUM [Concomitant]
     Indication: HYPOTHYROIDISM
     Dosage: 25 A?G, QD
     Route: 048
     Dates: start: 19950101
  4. CELEBREX [Concomitant]
     Indication: ARTHRITIS
     Dosage: 200 MG, BID
     Route: 048
     Dates: start: 20090101
  5. BOTOXA? [Suspect]
     Indication: TORTICOLLIS
     Dosage: UNK UNITS, Q 3 MONTHS
     Dates: start: 19980101, end: 20010101
  6. VITAMIN D [Concomitant]
     Indication: VITAMIN D DEFICIENCY
     Dosage: 1000 IU, QD
     Dates: start: 20100101
  7. FOLBIC [Concomitant]
     Indication: VITAMIN B COMPLEX DEFICIENCY
     Dosage: UNK
     Route: 048
     Dates: start: 20050101
  8. BOTOXA? [Suspect]
     Dosage: UNK UNITS Q 3 MONTHS
     Route: 030
     Dates: start: 20090101, end: 20100701
  9. METOPROLOL [Concomitant]
     Dosage: 100 MG, BID
     Route: 048
     Dates: start: 20110203
  10. NEXIUM [Concomitant]
     Indication: GASTROOESOPHAGEAL REFLUX DISEASE
     Dosage: 40 MG, QD
     Route: 048
     Dates: start: 20060101
  11. BOTOXA? [Suspect]
     Indication: BLEPHAROSPASM
     Dosage: 110 UNITS, SINGLE
     Route: 030
     Dates: start: 20101012, end: 20101012

REACTIONS (15)
  - CORNEAL REFLEX DECREASED [None]
  - DECREASED APPETITE [None]
  - DRY EYE [None]
  - DYSPNOEA [None]
  - FATIGUE [None]
  - VOMITING [None]
  - HEADACHE [None]
  - NAUSEA [None]
  - CHEST PAIN [None]
  - WEIGHT DECREASED [None]
  - ASTHENIA [None]
  - DRUG INEFFECTIVE [None]
  - CHILLS [None]
  - MUSCULAR WEAKNESS [None]
  - HYPERTENSION [None]
